FAERS Safety Report 24412592 (Version 1)
Quarter: 2024Q4

REPORT INFORMATION
  Report Type: Spontaneous
  Country: US (occurrence: None)
  Receive Date: 20241007
  Receipt Date: 20241007
  Transmission Date: 20250115
  Serious: No
  Sender: Public
  Company Number: None

PATIENT
  Age: 41 Year
  Sex: Female
  Weight: 74.7 kg

DRUGS (4)
  1. SEMAGLUTIDE [Suspect]
     Active Substance: SEMAGLUTIDE
     Indication: Weight decreased
     Dosage: OTHER QUANTITY : 1 SYRINGE;?OTHER FREQUENCY : 1 SYRINGE 3X/WK;?
     Route: 060
     Dates: start: 20240802, end: 20241002
  2. LEVOTHYROXINE [Concomitant]
     Active Substance: LEVOTHYROXINE
  3. DAILY MULVITAMIN [Concomitant]
  4. BIOTIN [Concomitant]
     Active Substance: BIOTIN

REACTIONS (2)
  - Drug ineffective [None]
  - Suspected counterfeit product [None]

NARRATIVE: CASE EVENT DATE: 20240802
